FAERS Safety Report 6087844-8 (Version None)
Quarter: 2009Q1

REPORT INFORMATION
  Report Type: 
  Country: None (occurrence: None)
  Receive Date: 20090219
  Receipt Date: 20090219
  Transmission Date: 20090719
  Serious: Yes (Hospitalization, Disabling)
  Sender: FDA-Public Use
  Company Number: None

PATIENT
  Sex: Female
  Weight: 83.0083 kg

DRUGS (2)
  1. AMBIEN [Suspect]
     Indication: FIBROMYALGIA
     Dosage: 10 MG 1 AT BEDTIME
  2. AMBIEN [Suspect]
     Indication: SLEEP APNOEA SYNDROME
     Dosage: 10 MG 1 AT BEDTIME

REACTIONS (8)
  - FALL [None]
  - FIBROMYALGIA [None]
  - GAIT DISTURBANCE [None]
  - MENISCUS LESION [None]
  - PAIN [None]
  - ROTATOR CUFF SYNDROME [None]
  - SOMNAMBULISM [None]
  - TENDON RUPTURE [None]
